FAERS Safety Report 5072557-1 (Version None)
Quarter: 2006Q3

REPORT INFORMATION
  Report Type: 
  Country: None (occurrence: None)
  Receive Date: 20060801
  Receipt Date: 20060718
  Transmission Date: 20061208
  Serious: Yes (Hospitalization)
  Sender: FDA-Public Use
  Company Number: DE200607003185

PATIENT
  Sex: Female

DRUGS (2)
  1. FORTEO [Suspect]
     Indication: OSTEOPOROSIS
     Dosage: 20 UG, DAILY (1/D), SUBCUTANEOUS
     Route: 058
     Dates: start: 20060214, end: 20060701
  2. FORTEO [Concomitant]

REACTIONS (4)
  - BLOOD CALCIUM INCREASED [None]
  - CONFUSIONAL STATE [None]
  - DIZZINESS [None]
  - GENERAL PHYSICAL HEALTH DETERIORATION [None]
